FAERS Safety Report 4333164-9 (Version None)
Quarter: 2004Q2

REPORT INFORMATION
  Report Type: 
  Country: None (occurrence: None)
  Receive Date: 20040405
  Receipt Date: 20040405
  Transmission Date: 20050107
  Serious: Yes (Other)
  Sender: FDA-Public Use
  Company Number: None

PATIENT
  Age: 47 Year
  Sex: Female
  Weight: 66.2252 kg

DRUGS (1)
  1. COLD-EEZE COLD REMEDYNASAL SPRAY 1X 3.36% THE QUIGLEY CORP. [Suspect]
     Indication: NASOPHARYNGITIS
     Dosage: 1 SPRAY 2-4 HRS.
     Route: 045
     Dates: start: 20040101, end: 20040101

REACTIONS (2)
  - NASAL DISCOMFORT [None]
  - PAROSMIA [None]
